FAERS Safety Report 16942984 (Version 1)
Quarter: 2019Q4

REPORT INFORMATION
  Report Type: Spontaneous
  Country: SE (occurrence: SE)
  Receive Date: 20191021
  Receipt Date: 20191021
  Transmission Date: 20200122
  Serious: Yes (Hospitalization)
  Sender: FDA-Public Use
  Company Number: SE-ALLERGAN-1941899US

PATIENT
  Sex: Male

DRUGS (16)
  1. DIAMOX SEQUELS [Concomitant]
     Active Substance: ACETAZOLAMIDE
  2. NOVOPULMON NOVOLIZER [Concomitant]
     Active Substance: BUDESONIDE
  3. HUMIRA [Concomitant]
     Active Substance: ADALIMUMAB
  4. FOLACIN [Concomitant]
  5. VENTILASTIN NOVOLIZER [Concomitant]
     Active Substance: ALBUTEROL SULFATE
  6. METOJECT [Concomitant]
     Active Substance: METHOTREXATE SODIUM
  7. METOPROLOL. [Suspect]
     Active Substance: METOPROLOL
     Indication: PRODUCT USED FOR UNKNOWN INDICATION
  8. DEXAFREE [Concomitant]
     Active Substance: DEXAMETHASONE SODIUM PHOSPHATE
  9. RANITIDIN [Concomitant]
     Active Substance: RANITIDINE HYDROCHLORIDE
  10. PREDNISOLON [Concomitant]
     Active Substance: PREDNISOLONE
  11. SIMBRINZA [Concomitant]
     Active Substance: BRIMONIDINE TARTRATE\BRINZOLAMIDE
  12. GANFORT [Suspect]
     Active Substance: BIMATOPROST\TIMOLOL
     Indication: PRODUCT USED FOR UNKNOWN INDICATION
  13. HUMALOG KWIKPEN [Concomitant]
     Active Substance: INSULIN LISPRO
  14. MIRTAZAPIN [Concomitant]
     Active Substance: MIRTAZAPINE
  15. NOVOMIX 30 FLEXPEN [Concomitant]
     Active Substance: INSULIN ASPART
  16. FORMATRIS  NOVALIZER [Concomitant]

REACTIONS (1)
  - Bradycardia [Recovering/Resolving]

NARRATIVE: CASE EVENT DATE: 20190921
